FAERS Safety Report 16904340 (Version 4)
Quarter: 2020Q4

REPORT INFORMATION
  Report Type: Report from Study
  Country: IT (occurrence: IT)
  Receive Date: 20191010
  Receipt Date: 20201118
  Transmission Date: 20210113
  Serious: Yes (Other)
  Sender: FDA-Public Use
  Company Number: IT-JNJFOC-20190939660

PATIENT
  Age: 69 Year
  Sex: Male
  Weight: 106 kg

DRUGS (2)
  1. STELARA [Suspect]
     Active Substance: USTEKINUMAB
     Indication: SPONDYLITIS
     Dosage: 1 FL DAY 1, 1 FL WEEK 4, 1 FL EVERY 12 WEEKS,
     Route: 058
     Dates: start: 201811, end: 201812
  2. STELARA [Suspect]
     Active Substance: USTEKINUMAB
     Indication: PSORIATIC ARTHROPATHY

REACTIONS (1)
  - Prostate cancer [Not Recovered/Not Resolved]

NARRATIVE: CASE EVENT DATE: 20190313
